FAERS Safety Report 21486144 (Version 1)
Quarter: 2022Q4

REPORT INFORMATION
  Report Type: Spontaneous
  Country: CN (occurrence: CN)
  Receive Date: 20221020
  Receipt Date: 20221020
  Transmission Date: 20230113
  Serious: Yes (Other)
  Sender: FDA-Public Use
  Company Number: CN-PFIZER INC-PV202200083440

PATIENT
  Age: 81 Year
  Sex: Male

DRUGS (3)
  1. CEFOPERAZONE SODIUM\SULBACTAM SODIUM [Suspect]
     Active Substance: CEFOPERAZONE SODIUM\SULBACTAM SODIUM
     Indication: Therapeutic procedure
     Dosage: 3 G, 3X/DAY
     Route: 041
     Dates: start: 20220804, end: 20220822
  2. VFEND [Suspect]
     Active Substance: VORICONAZOLE
     Indication: Therapeutic procedure
     Dosage: 200 MG, 2X/DAY
     Route: 048
     Dates: start: 20220811, end: 20220823
  3. MYCAMINE [Suspect]
     Active Substance: MICAFUNGIN SODIUM
     Indication: Therapeutic procedure
     Dosage: 150 MG, 1X/DAY
     Route: 041
     Dates: start: 20220811, end: 20220822

REACTIONS (2)
  - Hepatic function abnormal [Unknown]
  - Off label use [Unknown]

NARRATIVE: CASE EVENT DATE: 20220804
